FAERS Safety Report 4628122-0 (Version None)
Quarter: 2005Q2

REPORT INFORMATION
  Report Type: 
  Country: None (occurrence: None)
  Receive Date: 20050406
  Receipt Date: 20050329
  Transmission Date: 20051028
  Serious: Yes (Other)
  Sender: FDA-Public Use
  Company Number: GB-GLAXOSMITHKLINE-B0376114A

PATIENT
  Age: 77 Year
  Sex: Male

DRUGS (4)
  1. AVODART [Suspect]
     Indication: HYPERTENSION
     Dosage: 500MG UNKNOWN
     Route: 048
     Dates: start: 20040601, end: 20050201
  2. METFORMIN HCL [Concomitant]
     Indication: DIABETES MELLITUS
     Route: 048
     Dates: start: 20050101
  3. GLICLAZIDE [Concomitant]
     Indication: DIABETES MELLITUS
     Route: 048
     Dates: start: 20000101
  4. BENDROFLUAZIDE [Concomitant]
     Dosage: 2.5MG PER DAY
     Route: 048
     Dates: start: 20030101

REACTIONS (2)
  - BLOOD GLUCOSE INCREASED [None]
  - BODY MASS INDEX INCREASED [None]
